FAERS Safety Report 8402118 (Version 2)
Quarter: 2013Q1

REPORT INFORMATION
  Report Type: Spontaneous
  Country: CA (occurrence: CA)
  Receive Date: 20120213
  Receipt Date: 20130328
  Transmission Date: 20140127
  Serious: Yes (Life-Threatening, Other)
  Sender: FDA-Public Use
  Company Number: CA-JNJFOC-20120203418

PATIENT
  Age: 27 Year
  Sex: Female
  Weight: 71.5 kg

DRUGS (3)
  1. REMICADE [Suspect]
     Indication: CROHN^S DISEASE
     Dosage: 22ND INFUSION (4 VIALS)
     Route: 042
     Dates: start: 20120201
  2. REMICADE [Suspect]
     Indication: CROHN^S DISEASE
     Dosage: START DATE: POSSIBLY OCT-2008
     Route: 042
  3. REMICADE [Suspect]
     Indication: CROHN^S DISEASE
     Route: 042
     Dates: start: 200901

REACTIONS (9)
  - Type IV hypersensitivity reaction [Recovered/Resolved]
  - Flushing [Recovered/Resolved]
  - Infusion related reaction [Recovered/Resolved]
  - Exposure during pregnancy [Recovered/Resolved]
  - Chills [Recovered/Resolved]
  - Feeling abnormal [Recovered/Resolved]
  - Headache [Recovered/Resolved]
  - Nausea [Recovered/Resolved]
  - Bradycardia [Unknown]
